FAERS Safety Report 5602797-1 (Version None)
Quarter: 2008Q1

REPORT INFORMATION
  Report Type: 
  Country: None (occurrence: None)
  Receive Date: 20080125
  Receipt Date: 20080122
  Transmission Date: 20080703
  Serious: Yes (Other)
  Sender: FDA-Public Use
  Company Number: US-ASTRAZENECA-2008UW01633

PATIENT
  Age: 83 Year
  Sex: Female

DRUGS (7)
  1. FASLODEX [Suspect]
     Route: 030
     Dates: start: 20080101
  2. COUMADIN [Concomitant]
  3. NEURONTIN [Concomitant]
     Dosage: 300 MG X 2 BID
  4. BACTRIM [Concomitant]
     Dosage: 400/80 MG HALF DAILY
  5. FORTAMET [Concomitant]
  6. GLUCOTROL [Concomitant]
     Dosage: 10 MG ONE AND A HALF DAILY
  7. QUINAPRIL HCL [Concomitant]

REACTIONS (3)
  - ABDOMINAL PAIN [None]
  - MUSCULAR WEAKNESS [None]
  - NEUROPATHY PERIPHERAL [None]
